FAERS Safety Report 15106202 (Version 1)
Quarter: 2018Q3

REPORT INFORMATION
  Report Type: Spontaneous
  Country: CA (occurrence: CA)
  Receive Date: 20180704
  Receipt Date: 20180704
  Transmission Date: 20181010
  Serious: Yes (Hospitalization, Other)
  Sender: FDA-Public Use
  Company Number: CA-AMGEN-CANSP2018082499

PATIENT
  Age: 60 Year
  Sex: Female
  Weight: 69.5 kg

DRUGS (8)
  1. NEUPOGEN [Suspect]
     Active Substance: FILGRASTIM
     Indication: PROPHYLAXIS
  2. AVELOX [Concomitant]
     Active Substance: MOXIFLOXACIN HYDROCHLORIDE
     Dosage: 600 MG, UNK
     Dates: start: 20180611, end: 20180616
  3. VALTREX [Concomitant]
     Active Substance: VALACYCLOVIR HYDROCHLORIDE
     Dosage: UNK
     Dates: start: 20180615, end: 20180620
  4. CARBOPLATIN. [Concomitant]
     Active Substance: CARBOPLATIN
     Indication: LUNG NEOPLASM MALIGNANT
     Dosage: UNK
  5. NEUPOGEN [Suspect]
     Active Substance: FILGRASTIM
     Indication: NEUTROPENIA
     Dosage: 1 ML, QD (FOR 10 DAYS)
     Route: 058
     Dates: start: 20180514, end: 20180620
  6. PREDNISONE. [Concomitant]
     Active Substance: PREDNISONE
     Indication: HAEMOPTYSIS
     Dosage: 60 MG, UNK (DECREASING DOSE ALL 7 DAYS)
     Dates: start: 20180615
  7. VANCOMYCINE [Concomitant]
     Active Substance: VANCOMYCIN
     Dosage: 25 MG/ML, UNK
     Dates: start: 20180614, end: 20180620
  8. ETOPOSIDE. [Concomitant]
     Active Substance: ETOPOSIDE
     Indication: LUNG NEOPLASM MALIGNANT
     Dosage: UNK

REACTIONS (7)
  - Skin ulcer [Unknown]
  - Acute febrile neutrophilic dermatosis [Recovering/Resolving]
  - Extra dose administered [Unknown]
  - Haemoptysis [Unknown]
  - Scleritis [Recovering/Resolving]
  - Neutrophil count increased [Recovered/Resolved]
  - Adverse event [Unknown]

NARRATIVE: CASE EVENT DATE: 2018
